FAERS Safety Report 8311460-8 (Version None)
Quarter: 2012Q2

REPORT INFORMATION
  Report Type: 
  Country: None (occurrence: None)
  Receive Date: 20120425
  Receipt Date: 20120419
  Transmission Date: 20120825
  Serious: No
  Sender: FDA-Public Use
  Company Number: US-ROXANE LABORATORIES, INC.-2012-RO-01093RO

PATIENT
  Sex: Male

DRUGS (5)
  1. RANITIDINE [Concomitant]
     Indication: GASTROOESOPHAGEAL REFLUX DISEASE
     Dosage: 300 MG
  2. TYLENOL (CAPLET) [Concomitant]
     Indication: PAIN
  3. LOSARTAN POTASSIUM [Suspect]
     Indication: HYPERTENSION
     Dosage: 100 MG
     Route: 048
     Dates: start: 20120301
  4. ALLOPURINOL [Concomitant]
     Dosage: 100 MG
  5. AMLODIPINE [Concomitant]
     Dosage: 7.5 MG

REACTIONS (1)
  - CONSTIPATION [None]
